FAERS Safety Report 4592196-6 (Version None)
Quarter: 2005Q1

REPORT INFORMATION
  Report Type: 
  Country: None (occurrence: None)
  Receive Date: 20050228
  Receipt Date: 20050207
  Transmission Date: 20050727
  Serious: Yes (Hospitalization)
  Sender: FDA-Public Use
  Company Number: JP-JNJFOC-20040607185

PATIENT
  Sex: Female
  Weight: 47 kg

DRUGS (30)
  1. REMICADE [Suspect]
  2. REMICADE [Suspect]
     Indication: RHEUMATOID ARTHRITIS
  3. RHEUMATREX [Suspect]
     Route: 049
  4. RHEUMATREX [Suspect]
     Indication: RHEUMATOID ARTHRITIS
     Route: 049
  5. CLINORIL [Concomitant]
     Indication: RHEUMATOID ARTHRITIS
     Route: 049
  6. ATOLANT [Concomitant]
     Route: 061
  7. ATOLANT [Concomitant]
     Route: 061
  8. DIDRONEL [Concomitant]
     Indication: OSTEOPOROSIS
     Route: 049
  9. FOLIAMIN [Concomitant]
     Indication: FOLATE DEFICIENCY
     Dosage: 5
     Route: 049
  10. GASTER D [Concomitant]
     Route: 049
  11. MUCOSTA [Concomitant]
     Route: 049
  12. BIOPRESS [Concomitant]
     Indication: HYPERTENSION
     Route: 049
  13. KETOPROFEN [Concomitant]
     Indication: RHEUMATOID ARTHRITIS
     Dosage: 5-6
     Route: 049
  14. PRIDOL [Concomitant]
     Indication: RHEUMATOID ARTHRITIS
     Route: 041
  15. PROTACOL-R [Concomitant]
     Indication: RHEUMATOID ARTHRITIS
     Route: 041
  16. TN 1001 [Concomitant]
     Indication: RHEUMATOID ARTHRITIS
     Route: 041
  17. CARBENIN [Concomitant]
     Route: 041
  18. CARBENIN [Concomitant]
     Indication: RHEUMATOID ARTHRITIS
     Route: 041
  19. ZANTAC [Concomitant]
     Route: 041
  20. VEEN-D [Concomitant]
     Route: 041
  21. VEEN-D [Concomitant]
     Route: 041
  22. VEEN-D [Concomitant]
     Route: 041
  23. VEEN-D [Concomitant]
     Route: 041
  24. VEEN-D [Concomitant]
     Indication: RHEUMATOID ARTHRITIS
     Route: 041
  25. MYSLEE [Concomitant]
     Indication: RHEUMATOID ARTHRITIS
     Route: 049
  26. METHYLCOOL [Concomitant]
     Indication: NEUROPATHY PERIPHERAL
     Route: 049
  27. D-ALPHA [Concomitant]
     Indication: OSTEOPOROSIS
     Route: 049
  28. METHISTA [Concomitant]
     Route: 049
  29. ADOFEED [Concomitant]
     Indication: RHEUMATOID ARTHRITIS
  30. LIVOSTIN [Concomitant]
     Indication: CONJUNCTIVITIS
     Route: 061

REACTIONS (2)
  - INTERSTITIAL LUNG DISEASE [None]
  - PYREXIA [None]
